FAERS Safety Report 8313155-3 (Version None)
Quarter: 2012Q2

REPORT INFORMATION
  Report Type: 
  Country: None (occurrence: None)
  Receive Date: 20120426
  Receipt Date: 20120424
  Transmission Date: 20120825
  Serious: No
  Sender: FDA-Public Use
  Company Number: US-PFIZER INC-2012094764

PATIENT

DRUGS (3)
  1. POTASSIUM PENICILLIN G [Suspect]
  2. CARDIZEM [Suspect]
     Dosage: UNK
  3. PENICILLIN G PROCAINE [Suspect]
     Dosage: UNK

REACTIONS (3)
  - MALAISE [None]
  - HEADACHE [None]
  - NAUSEA [None]
